FAERS Safety Report 7118147-8 (Version None)
Quarter: 2010Q4

REPORT INFORMATION
  Report Type: 
  Country: None (occurrence: None)
  Receive Date: 20101123
  Receipt Date: 20101110
  Transmission Date: 20110411
  Serious: Yes (Hospitalization)
  Sender: FDA-Public Use
  Company Number: DE-SANOFI-AVENTIS-2010SA070436

PATIENT
  Age: 72 Year
  Sex: Male
  Weight: 90 kg

DRUGS (4)
  1. ELOXATIN [Suspect]
     Indication: RECTAL CANCER
     Route: 042
     Dates: start: 20100212, end: 20100212
  2. ELOXATIN [Suspect]
     Route: 042
     Dates: start: 20100312, end: 20100312
  3. XELODA [Suspect]
     Indication: RECTAL CANCER
     Route: 048
     Dates: start: 20100212
  4. XELODA [Suspect]
     Route: 048
     Dates: end: 20100722

REACTIONS (2)
  - WOUND COMPLICATION [None]
  - WOUND INFECTION STAPHYLOCOCCAL [None]
